FAERS Safety Report 9918058 (Version 1)
Quarter: 2014Q1

REPORT INFORMATION
  Report Type: Spontaneous
  Country: US (occurrence: US)
  Receive Date: 20140223
  Receipt Date: 20140223
  Transmission Date: 20141002
  Serious: No
  Sender: FDA-Public Use
  Company Number: US-009507513-1402USA009506

PATIENT
  Age: 70 Year
  Sex: Male

DRUGS (1)
  1. TICE BCG LIVE [Suspect]
     Indication: PROPHYLAXIS
     Dosage: UNK
     Dates: start: 20140211

REACTIONS (2)
  - Body temperature increased [Unknown]
  - Blood urine present [Unknown]
